FAERS Safety Report 18518264 (Version 1)
Quarter: 2020Q4

REPORT INFORMATION
  Report Type: Report from Study
  Country: NL (occurrence: NL)
  Receive Date: 20201118
  Receipt Date: 20201118
  Transmission Date: 20210114
  Serious: Yes (Hospitalization)
  Sender: FDA-Public Use
  Company Number: NL-IPSEN BIOPHARMACEUTICALS, INC.-2020-22378

PATIENT
  Age: 62 Year
  Sex: Female

DRUGS (1)
  1. SOMATULINE AUTOSOLUTION [Suspect]
     Active Substance: LANREOTIDE ACETATE
     Indication: PRODUCT USED FOR UNKNOWN INDICATION
     Route: 058
     Dates: start: 20191130

REACTIONS (1)
  - Uterine tumour excision [Recovering/Resolving]

NARRATIVE: CASE EVENT DATE: 20201028
